FAERS Safety Report 17008739 (Version 2)
Quarter: 2021Q2

REPORT INFORMATION
  Report Type: Report from Study
  Country: KR (occurrence: KR)
  Receive Date: 20191108
  Receipt Date: 20210507
  Transmission Date: 20210716
  Serious: Yes (Hospitalization)
  Sender: FDA-Public Use
  Company Number: KR-IPSEN BIOPHARMACEUTICALS, INC.-2019-21062

PATIENT
  Age: 47 Year
  Sex: Male
  Weight: 65 kg

DRUGS (10)
  1. ONIVYDE [Suspect]
     Active Substance: IRINOTECAN HYDROCHLORIDE
     Dosage: 120 MG, ONE DOSE
     Route: 042
     Dates: start: 20190927, end: 20190927
  2. FLUOROURACIL. [Concomitant]
     Active Substance: FLUOROURACIL
     Indication: PANCREATIC CARCINOMA METASTATIC
     Dosage: 2256 MG, UNKNOWN
     Route: 042
     Dates: start: 20190911, end: 20190913
  3. FLUOROURACIL. [Concomitant]
     Active Substance: FLUOROURACIL
     Dosage: 2112 MG, UNKNOWN
     Route: 042
     Dates: start: 20190927, end: 20190929
  4. LEUCOVORIN. [Concomitant]
     Active Substance: LEUCOVORIN
     Indication: PANCREATIC CARCINOMA METASTATIC
     Dosage: 376 MG, ONE DOSE
     Route: 042
     Dates: start: 20190911, end: 20190911
  5. LIXIANA [Concomitant]
     Active Substance: EDOXABAN TOSYLATE
     Indication: PULMONARY EMBOLISM
     Dosage: 60 MG, QD
     Route: 058
     Dates: start: 20190403
  6. FLUOROURACIL. [Concomitant]
     Active Substance: FLUOROURACIL
     Dosage: 2148 MG, UNKNOWN
     Route: 042
     Dates: start: 20191012, end: 20191013
  7. LEUCOVORIN. [Concomitant]
     Active Substance: LEUCOVORIN
     Dosage: 352 MG, ONE DOSE
     Route: 042
     Dates: start: 20190927, end: 20190927
  8. ONIVYDE [Suspect]
     Active Substance: IRINOTECAN HYDROCHLORIDE
     Dosage: 122 MG, ONE DOSE
     Route: 042
     Dates: start: 20191011, end: 20191011
  9. ONIVYDE [Suspect]
     Active Substance: IRINOTECAN HYDROCHLORIDE
     Indication: PANCREATIC CARCINOMA METASTATIC
     Dosage: 128 MG, ONE DOSE
     Route: 042
     Dates: start: 20190911, end: 20190911
  10. LEUCOVORIN. [Concomitant]
     Active Substance: LEUCOVORIN
     Dosage: 358 MG, ONE DOSE
     Route: 042
     Dates: start: 20191011, end: 20191011

REACTIONS (2)
  - Febrile neutropenia [Recovered/Resolved]
  - Clostridium difficile infection [Recovered/Resolved]

NARRATIVE: CASE EVENT DATE: 20191025
